FAERS Safety Report 9457503 (Version 1)
Quarter: 2013Q3

REPORT INFORMATION
  Report Type: Spontaneous
  Country: RU (occurrence: None)
  Receive Date: 20130812
  Receipt Date: 20130812
  Transmission Date: 20140515
  Serious: Yes (Life-Threatening, Other)
  Sender: FDA-Public Use
  Company Number: AG-2012-1629

PATIENT
  Age: 76 Year
  Sex: Female
  Weight: 81.2 kg

DRUGS (13)
  1. CHLORAMBUCIL [Suspect]
     Indication: CHRONIC LYMPHOCYTIC LEUKAEMIA
     Dosage: DAY 1, DAY 15, DAY 28
     Route: 048
     Dates: start: 20120227
  2. OBINUTUZUMAB [Suspect]
     Dosage: CYCLE1 ON DAYS 1,2,8,15 CYCLE2 ON DAY 1
     Route: 042
     Dates: start: 20120227, end: 20120227
  3. LISINOPRIL [Concomitant]
  4. ASPIRIN (ACETYLSALICYLIC ACID) [Concomitant]
  5. MAGNESIUM HYDROXIDE [Concomitant]
  6. INSULIN (INSULINS AND ANALOGUES) [Concomitant]
  7. INSULIN ISOPHANE (INSULINS AND ANALOGUES) [Concomitant]
  8. ALLOPURINOL [Concomitant]
  9. TRISEPTIL (CHLORHEXIDINE) [Concomitant]
  10. PROPRANOLOL [Concomitant]
  11. SPIRONOLACTONE [Concomitant]
  12. INOSINE [Concomitant]
  13. OUABANIN (G-STROPHANTIN) [Concomitant]

REACTIONS (2)
  - Hypertensive crisis [None]
  - Febrile neutropenia [None]
